FAERS Safety Report 4805375-7 (Version None)
Quarter: 2005Q4

REPORT INFORMATION
  Report Type: 
  Country: None (occurrence: None)
  Receive Date: 20051017
  Receipt Date: 20051007
  Transmission Date: 20060501
  Serious: Yes (Other)
  Sender: FDA-Public Use
  Company Number: 2005-10-0361

PATIENT
  Age: 40 Year
  Sex: Male

DRUGS (3)
  1. TEMODAR [Suspect]
     Indication: BRAIN NEOPLASM
     Dosage: ORAL
     Route: 048
  2. NUTRITIONAL SUPLEMENT [Concomitant]
  3. .. [Concomitant]

REACTIONS (4)
  - ALANINE AMINOTRANSFERASE INCREASED [None]
  - ASPARTATE AMINOTRANSFERASE INCREASED [None]
  - BLOOD ALKALINE PHOSPHATASE INCREASED [None]
  - HEPATOTOXICITY [None]
